FAERS Safety Report 9055193 (Version 1)
Quarter: 2013Q1

REPORT INFORMATION
  Report Type: Spontaneous
  Country: US (occurrence: US)
  Receive Date: 20130206
  Receipt Date: 20130206
  Transmission Date: 20140127
  Serious: No
  Sender: FDA-Public Use
  Company Number: US-TEVA-384699USA

PATIENT
  Sex: Female
  Weight: 74.91 kg

DRUGS (3)
  1. NUVIGIL [Suspect]
     Indication: SLEEP APNOEA SYNDROME
     Dates: start: 201212
  2. RISPERIDONE [Concomitant]
     Indication: SCHIZOPHRENIA
  3. EFFEXOR [Concomitant]
     Indication: SCHIZOPHRENIA

REACTIONS (1)
  - Drug effect decreased [Not Recovered/Not Resolved]
